FAERS Safety Report 17604551 (Version 1)
Quarter: 2020Q1

REPORT INFORMATION
  Report Type: Spontaneous
  Country: CN (occurrence: CN)
  Receive Date: 20200331
  Receipt Date: 20200331
  Transmission Date: 20200409
  Serious: Yes (Other)
  Sender: FDA-Public Use
  Company Number: CN-PFIZER INC-2020132306

PATIENT
  Age: 58 Year
  Sex: Female
  Weight: 48 kg

DRUGS (4)
  1. CYCLOPHOSPHAMIDE. [Suspect]
     Active Substance: CYCLOPHOSPHAMIDE
     Indication: CHEMOTHERAPY
     Dosage: 950 MG, ONCE A DAY
     Route: 042
     Dates: start: 20200215, end: 20200215
  2. STERILE WATER [Concomitant]
     Active Substance: WATER
     Indication: VEHICLE SOLUTION USE
     Dosage: 50 ML, 1X/DAY
     Route: 042
     Dates: start: 20200215, end: 20200215
  3. SODIUM CHLORIDE. [Concomitant]
     Active Substance: SODIUM CHLORIDE
     Indication: VEHICLE SOLUTION USE
     Dosage: 50 ML, 1X/DAY
     Route: 042
     Dates: start: 20200215, end: 20200215
  4. PHARMORUBICIN [Suspect]
     Active Substance: EPIRUBICIN
     Indication: CHEMOTHERAPY
     Dosage: 80 MG, ONCE A DAY
     Route: 042
     Dates: start: 20200215, end: 20200215

REACTIONS (5)
  - Dizziness [Recovering/Resolving]
  - Vomiting [Recovering/Resolving]
  - Bone marrow failure [Recovering/Resolving]
  - Drug-induced liver injury [Recovering/Resolving]
  - Nausea [Recovering/Resolving]

NARRATIVE: CASE EVENT DATE: 20200221
